FAERS Safety Report 13649188 (Version 1)
Quarter: 2017Q2

REPORT INFORMATION
  Report Type: Report from Study
  Country: CA (occurrence: CA)
  Receive Date: 20170613
  Receipt Date: 20170613
  Transmission Date: 20170830
  Serious: Yes (Hospitalization)
  Sender: FDA-Public Use
  Company Number: CA-HLSUS-2017-CA-000528

PATIENT
  Age: 75 Year
  Sex: Male

DRUGS (1)
  1. CLOZARIL [Suspect]
     Active Substance: CLOZAPINE
     Indication: SCHIZOPHRENIA
     Dosage: 125MG TWICE A DAY
     Route: 048
     Dates: start: 20170130, end: 20170403

REACTIONS (6)
  - Fall [Recovered/Resolved]
  - Fall [Unknown]
  - Adverse drug reaction [Unknown]
  - Confusional state [Unknown]
  - Cerebral atrophy [Unknown]
  - Dysarthria [Recovered/Resolved]

NARRATIVE: CASE EVENT DATE: 20170405
